FAERS Safety Report 19457111 (Version 3)
Quarter: 2021Q4

REPORT INFORMATION
  Report Type: Spontaneous
  Country: CZ (occurrence: CZ)
  Receive Date: 20210624
  Receipt Date: 20211209
  Transmission Date: 20220303
  Serious: Yes (Hospitalization, Other)
  Sender: FDA-Public Use
  Company Number: CZ-BIOVITRUM-2021CZ5250

PATIENT
  Age: 77 Year
  Sex: Male

DRUGS (2)
  1. ANAKINRA [Suspect]
     Active Substance: ANAKINRA
     Indication: Schnitzler^s syndrome
     Route: 058
     Dates: start: 200703
  2. ANAKINRA [Suspect]
     Active Substance: ANAKINRA
     Route: 058

REACTIONS (3)
  - Waldenstrom^s macroglobulinaemia [Unknown]
  - Product dose omission in error [Unknown]
  - Off label use [Not Recovered/Not Resolved]

NARRATIVE: CASE EVENT DATE: 20070301
